FAERS Safety Report 5143496-2 (Version None)
Quarter: 2006Q4

REPORT INFORMATION
  Report Type: 
  Country: None (occurrence: None)
  Receive Date: 20061103
  Receipt Date: 20061025
  Transmission Date: 20070319
  Serious: Yes (Hospitalization)
  Sender: FDA-Public Use
  Company Number: IT-GLAXOSMITHKLINE-B0444265A

PATIENT
  Sex: Male

DRUGS (1)
  1. ABACAVIR SULPHATE+LAMIVUDINE+ZIDOVUDINE [Suspect]
     Indication: HIV INFECTION
     Route: 048

REACTIONS (3)
  - INTENTIONAL OVERDOSE [None]
  - SOMNOLENCE [None]
  - SOPOR [None]
